FAERS Safety Report 16796059 (Version 1)
Quarter: 2019Q3

REPORT INFORMATION
  Report Type: Report from Study
  Country: US (occurrence: US)
  Receive Date: 20190911
  Receipt Date: 20190911
  Transmission Date: 20191005
  Serious: Yes (Other)
  Sender: FDA-Public Use
  Company Number: US-SA-2019SA248480

PATIENT

DRUGS (2)
  1. RANITIDINE. [Suspect]
     Active Substance: RANITIDINE
     Dosage: 1-4 MG/KG/DAY
     Route: 042
  2. RANITIDINE. [Suspect]
     Active Substance: RANITIDINE
     Dosage: 6 MG/KG/DAY

REACTIONS (2)
  - Bacteraemia [Unknown]
  - Dysbiosis [Unknown]
